FAERS Safety Report 6529089 (Version 4)
Quarter: 2013Q4

REPORT INFORMATION
  Report Type: Report from Study
  Country: US (occurrence: US)
  Receive Date: 20080117
  Receipt Date: 20131017
  Transmission Date: 20140711
  Serious: Yes (Hospitalization)
  Sender: FDA-Public Use
  Company Number: US-BAYER-200810102BCC

PATIENT
  Age: 63 Year
  Sex: Male
  Weight: 91.61 kg

DRUGS (20)
  1. ACETYLSALICYLIC ACID({=100 MG) [Suspect]
     Indication: CARDIOVASCULAR EVENT PROPHYLAXIS
     Dosage: TOTAL DAILY DOSE: 100 MG
     Route: 048
     Dates: start: 20071220, end: 20071230
  2. ACETYLSALICYLIC ACID({=100 MG) [Suspect]
     Indication: CARDIOVASCULAR EVENT PROPHYLAXIS
     Dosage: TOTAL DAILY DOSE 100 MG
     Route: 048
     Dates: start: 20080303
  3. NORVASC [Concomitant]
     Indication: HYPERTENSION
     Dosage: TOTAL DAILY DOSE: 10 MG
     Route: 048
     Dates: start: 19990628
  4. ZESTRIL [Concomitant]
     Indication: HYPERTENSION
     Dosage: TOTAL DAILY DOSE: 20 MG
     Route: 048
     Dates: start: 20070117
  5. PRAVACHOL [Concomitant]
     Indication: HYPERLIPIDAEMIA
     Dosage: TOTAL DAILY DOSE: 40 MG
     Route: 048
     Dates: start: 20070117
  6. LASIX [Concomitant]
     Indication: GRAVITATIONAL OEDEMA
     Dosage: 40 MG, PRN
     Dates: start: 20080325
  7. PROSCAR [Concomitant]
     Indication: BENIGN PROSTATIC HYPERPLASIA
     Dosage: TOTAL DAILY DOSE: 5 MG
     Route: 048
     Dates: start: 20090408, end: 20090908
  8. DARVOCET [Concomitant]
     Indication: ARTHRALGIA
     Dosage: DAILY DOSE 100 MG
     Route: 048
     Dates: start: 20080602
  9. VIAGRA [Concomitant]
     Indication: ERECTILE DYSFUNCTION
     Dosage: 50 MG, PRN
     Route: 048
     Dates: start: 20081212
  10. LEVAQUIN [Concomitant]
     Indication: BRONCHOPNEUMONIA
     Dosage: 750 MG, QD
     Route: 048
     Dates: start: 20090112, end: 20090117
  11. DOXYCYCLINE [Concomitant]
     Indication: TRACHEOBRONCHITIS
     Dosage: 100 MG, BID
     Route: 048
     Dates: start: 20090119, end: 20090129
  12. MEDROL [Concomitant]
     Indication: TRACHEOBRONCHITIS
     Dosage: USE AS DIRECTED
     Route: 048
     Dates: start: 20090119, end: 20090129
  13. LORTAB [Concomitant]
     Indication: PAIN
     Route: 048
  14. LORTAB [Concomitant]
     Indication: NEPHROLITHIASIS
     Dosage: 10 MG, PRN
     Route: 048
     Dates: start: 20080101, end: 20080131
  15. LORTAB [Concomitant]
     Indication: CALCULUS URETERIC
     Dosage: 10 MG - 500MG
     Route: 048
     Dates: start: 20071230, end: 20071230
  16. LORTAB [Concomitant]
     Indication: RENAL COLIC
  17. DILAUDID [Concomitant]
     Indication: RENAL COLIC
     Dosage: 2 MG, PRN
     Route: 048
     Dates: start: 20071230, end: 20071230
  18. TOPROL XL [Concomitant]
     Indication: HYPERTENSION
     Dosage: TOTAL DAILY DOSE: 100 MG
     Route: 048
     Dates: start: 20120726
  19. LIDEX [Concomitant]
     Indication: SKIN DISORDER
     Dosage: TOTAL DAILY DOSE: 0.05%
     Route: 061
     Dates: start: 20110425, end: 20120322
  20. DEPO MEDROL [Concomitant]
     Indication: BURSITIS
     Dosage: DAILY DOSE 80 MG
     Route: 030
     Dates: start: 20100524, end: 20100524

REACTIONS (4)
  - Renal colic [Recovering/Resolving]
  - Urethral pain [Recovering/Resolving]
  - Nephrolithiasis [Recovered/Resolved]
  - Ureteric stenosis [Recovered/Resolved]
